FAERS Safety Report 9516156 (Version 2)
Quarter: 2013Q3

REPORT INFORMATION
  Report Type: Spontaneous
  Country: US (occurrence: None)
  Receive Date: 20130313
  Receipt Date: 20130815
  Transmission Date: 20140515
  Serious: Yes (Hospitalization, Other)
  Sender: FDA-Public Use
  Company Number: ADR-2007-3998

PATIENT
  Age: 63 Year
  Sex: Male

DRUGS (3)
  1. LIORESAL INTRATHECAL (BACLOFEN INJECTION) [Suspect]
     Indication: MUSCLE SPASTICITY
  2. DILAUDID (DOSE, CONCENTRATION UNK) [Concomitant]
  3. ORAL BACLOFEN (DOSE; CONCENTRATION UNK) [Concomitant]

REACTIONS (12)
  - Device malfunction [None]
  - Fall [None]
  - Pain [None]
  - Muscle spasms [None]
  - Incoherent [None]
  - Dehydration [None]
  - Aphasia [None]
  - Hypophagia [None]
  - No therapeutic response [None]
  - Muscle tightness [None]
  - Drug intolerance [None]
  - Muscle spasms [None]
